FAERS Safety Report 13759795 (Version 1)
Quarter: 2017Q3

REPORT INFORMATION
  Report Type: Spontaneous
  Country: US (occurrence: US)
  Receive Date: 20170717
  Receipt Date: 20170717
  Transmission Date: 20171127
  Serious: No
  Sender: FDA-Public Use
  Company Number: US-AMNEAL PHARMACEUTICALS-2017AMN00596

PATIENT
  Age: 73 Year
  Sex: Female
  Weight: 99.77 kg

DRUGS (3)
  1. DICLOFENAC SODIUM. [Suspect]
     Active Substance: DICLOFENAC SODIUM
     Indication: PAIN IN EXTREMITY
     Dosage: UNK
     Dates: start: 20170501, end: 20170501
  2. DICLOFENAC SODIUM. [Suspect]
     Active Substance: DICLOFENAC SODIUM
     Indication: MUSCULOSKELETAL PAIN
  3. WARFARIN [Concomitant]
     Active Substance: WARFARIN
     Indication: BLOOD DISORDER

REACTIONS (3)
  - Pruritus [Not Recovered/Not Resolved]
  - Application site rash [Not Recovered/Not Resolved]
  - Application site papules [Not Recovered/Not Resolved]

NARRATIVE: CASE EVENT DATE: 20170502
